FAERS Safety Report 5502908-2 (Version None)
Quarter: 2007Q4

REPORT INFORMATION
  Report Type: 
  Country: None (occurrence: None)
  Receive Date: 20071029
  Receipt Date: 20071029
  Transmission Date: 20080405
  Serious: Yes (Hospitalization, Other)
  Sender: FDA-Public Use
  Company Number: None

PATIENT

DRUGS (2)
  1. CUROSURF [Suspect]
     Dates: start: 20071014, end: 20071014
  2. RSV PLUS TEST      MERIDIAN [Suspect]
     Dates: start: 20071014, end: 20071014

REACTIONS (3)
  - LABORATORY TEST INTERFERENCE [None]
  - MEDICATION ERROR [None]
  - PHARMACEUTICAL PRODUCT COMPLAINT [None]
